FAERS Safety Report 19403421 (Version 2)
Quarter: 2021Q3

REPORT INFORMATION
  Report Type: Spontaneous
  Country: US (occurrence: US)
  Receive Date: 20210610
  Receipt Date: 20210928
  Transmission Date: 20211014
  Serious: No
  Sender: FDA-Public Use
  Company Number: US-SA-2021SA191490

PATIENT
  Age: 48 Year
  Sex: Female

DRUGS (2)
  1. DUPIXENT [Suspect]
     Active Substance: DUPILUMAB
     Dosage: 2.28ML INJECT 200MG UNDER SKIN ONE TIME EVERY 2 WEEKS
     Route: 058
     Dates: start: 20210813
  2. DUPIXENT [Suspect]
     Active Substance: DUPILUMAB
     Indication: ASTHMA
     Dosage: 300 MG, QOW
     Route: 058
     Dates: start: 20200813, end: 2021

REACTIONS (4)
  - Adverse drug reaction [Unknown]
  - Pain [Unknown]
  - Ocular hyperaemia [Unknown]
  - Product use issue [Unknown]

NARRATIVE: CASE EVENT DATE: 20200813
